FAERS Safety Report 25266747 (Version 1)
Quarter: 2025Q2

REPORT INFORMATION
  Report Type: Spontaneous
  Country: JP (occurrence: JP)
  Receive Date: 20250505
  Receipt Date: 20250505
  Transmission Date: 20250716
  Serious: Yes (Hospitalization)
  Sender: ARGENX BVBA
  Company Number: JP-ARGENX-2025-ARGX-JP005425AA

PATIENT

DRUGS (1)
  1. EFGARTIGIMOD ALFA\HYALURONIDASE-QVFC [Suspect]
     Active Substance: EFGARTIGIMOD ALFA\HYALURONIDASE-QVFC
     Indication: Myasthenia gravis
     Route: 058
     Dates: start: 20250109

REACTIONS (1)
  - Otitis media [Recovering/Resolving]

NARRATIVE: CASE EVENT DATE: 20250425
